FAERS Safety Report 5765522-X (Version None)
Quarter: 2008Q2

REPORT INFORMATION
  Report Type: 
  Country: None (occurrence: None)
  Receive Date: 20080611
  Receipt Date: 20080606
  Transmission Date: 20081010
  Serious: Yes (Life-Threatening)
  Sender: FDA-Public Use
  Company Number: US-MERCK-0806USA00332

PATIENT
  Age: 79 Year
  Sex: Female

DRUGS (4)
  1. SINGULAIR [Suspect]
     Indication: RHINITIS ALLERGIC
     Route: 048
     Dates: start: 20080201, end: 20080101
  2. CELEBREX [Concomitant]
     Route: 065
  3. PROTONIX [Concomitant]
     Route: 065
  4. ALLERGENIC EXTRACT [Concomitant]
     Route: 065

REACTIONS (1)
  - SUICIDAL IDEATION [None]
